FAERS Safety Report 8999449 (Version 2)
Quarter: 2013Q1

REPORT INFORMATION
  Report Type: Spontaneous
  Country: US (occurrence: US)
  Receive Date: 20130103
  Receipt Date: 20130117
  Transmission Date: 20140127
  Serious: Yes (Other)
  Sender: FDA-Public Use
  Company Number: US-ROCHE-1176202

PATIENT
  Age: 68 Year
  Sex: Female

DRUGS (6)
  1. GANCICLOVIR [Suspect]
     Indication: ACQUIRED IMMUNODEFICIENCY SYNDROME
     Route: 042
  2. GANCICLOVIR [Suspect]
     Indication: RETINITIS
  3. GANCICLOVIR [Suspect]
     Indication: ANTIVIRAL PROPHYLAXIS
  4. VALGANCICLOVIR [Suspect]
     Indication: ANTIVIRAL PROPHYLAXIS
     Route: 065
  5. FOSCARNET [Concomitant]
  6. CIDOFOVIR [Concomitant]
     Route: 065

REACTIONS (2)
  - Drug resistance [Unknown]
  - Leukopenia [Unknown]
